FAERS Safety Report 17057078 (Version 1)
Quarter: 2019Q4

REPORT INFORMATION
  Report Type: Spontaneous
  Country: US (occurrence: US)
  Receive Date: 20191121
  Receipt Date: 20191121
  Transmission Date: 20200122
  Serious: Yes (Hospitalization, Other)
  Sender: FDA-Public Use
  Company Number: US-AUROBINDO-AUR-APL-2019-073451

PATIENT
  Age: 58 Year
  Sex: Female

DRUGS (3)
  1. IMIPENEM [Suspect]
     Active Substance: IMIPENEM
     Indication: OSTEOMYELITIS CHRONIC
  2. MEROPENEM. [Suspect]
     Active Substance: MEROPENEM
     Indication: OSTEOMYELITIS CHRONIC
     Dosage: UNK
     Route: 065
  3. ERTAPENEM. [Suspect]
     Active Substance: ERTAPENEM SODIUM
     Indication: OSTEOMYELITIS CHRONIC
     Dosage: UNK
     Route: 065

REACTIONS (7)
  - Pustule [Unknown]
  - Rash erythematous [Unknown]
  - Acute generalised exanthematous pustulosis [Unknown]
  - Rash [Unknown]
  - Skin exfoliation [Unknown]
  - Rash vesicular [Unknown]
  - Therapeutic product cross-reactivity [Unknown]
